FAERS Safety Report 9752149 (Version 1)
Quarter: 2013Q4

REPORT INFORMATION
  Report Type: Spontaneous
  Country: DE (occurrence: DE)
  Receive Date: 20131213
  Receipt Date: 20131213
  Transmission Date: 20140711
  Serious: Yes (Hospitalization, Other)
  Sender: FDA-Public Use
  Company Number: DE-AMGEN-DEUSP2013086132

PATIENT
  Age: 76 Year
  Sex: Female

DRUGS (6)
  1. XGEVA [Suspect]
     Indication: METASTASES TO BONE
     Dosage: UNK UNK, QMO
     Route: 065
     Dates: start: 201302
  2. GEMZAR [Concomitant]
     Dosage: UNK
     Dates: end: 201303
  3. CISPLATIN [Concomitant]
     Dosage: UNK
     Dates: end: 201303
  4. IODIDE [Concomitant]
     Dosage: 100, QD
  5. PANTOZOL                           /01263204/ [Concomitant]
     Dosage: 40, QD
  6. NOVAMINSULFON [Concomitant]
     Dosage: 30 DROPS, TID (AS NECESSARY)

REACTIONS (8)
  - Hungry bone syndrome [Unknown]
  - Epilepsy [Unknown]
  - Respiratory alkalosis [Unknown]
  - Metastases to lymph nodes [Unknown]
  - Metastases to liver [Unknown]
  - Hypocalcaemia [Unknown]
  - Hypokalaemia [Unknown]
  - Polyneuropathy [Unknown]
